FAERS Safety Report 4283966-2 (Version None)
Quarter: 2004Q1

REPORT INFORMATION
  Report Type: 
  Country: None (occurrence: None)
  Receive Date: 20040121
  Receipt Date: 20021203
  Transmission Date: 20041129
  Serious: Yes (Other)
  Sender: FDA-Public Use
  Company Number: A03200201493

PATIENT
  Sex: 0

DRUGS (3)
  1. PLAVIX [Suspect]
     Indication: CEREBROVASCULAR ACCIDENT
     Dosage: ORAL
     Route: 048
  2. ACETYLSALICYLIC ACID SRT [Concomitant]
  3. WARFARIN SODIUM [Concomitant]

REACTIONS (1)
  - TRAUMATIC HAEMORRHAGE [None]
